FAERS Safety Report 4487375-2 (Version None)
Quarter: 2004Q4

REPORT INFORMATION
  Report Type: 
  Country: None (occurrence: None)
  Receive Date: 20041022
  Receipt Date: 20041018
  Transmission Date: 20050328
  Serious: Yes (Life-Threatening, Hospitalization)
  Sender: FDA-Public Use
  Company Number: 2004-06-1053

PATIENT
  Age: 67 Year
  Sex: Female
  Weight: 54 kg

DRUGS (9)
  1. REBETOL [Suspect]
     Indication: HEPATITIS C
     Dosage: 600 MG ORAL
     Route: 048
     Dates: start: 20040513, end: 20040613
  2. INTRON A [Suspect]
     Indication: HEPATITIS C
     Dosage: 6MU*5X/WK-TIW INTRAMUSCU
     Route: 030
     Dates: start: 20040513, end: 20040611
  3. INTRON A [Suspect]
     Indication: HEPATITIS C
     Dosage: 6 MU 5X/WK INTRAMUSCULAR
     Route: 030
     Dates: start: 20040513, end: 20040528
  4. INTRON A [Suspect]
     Indication: HEPATITIS C
     Dosage: 6 MU TIW INTRAMUSCULAR
     Route: 030
     Dates: start: 20040602, end: 20050611
  5. CONIEL (BENIDIPINE HCL) [Concomitant]
  6. INDERAL RETARD (PROPRANOLOL HCL) [Concomitant]
  7. PROHEPARUM [Concomitant]
  8. URSOSAN           TABLETS [Concomitant]
  9. NEUER           GRANULES [Concomitant]

REACTIONS (5)
  - EPISTAXIS [None]
  - GINGIVAL BLEEDING [None]
  - HAEMATOCRIT DECREASED [None]
  - HAEMATURIA [None]
  - PLATELET COUNT DECREASED [None]
